FAERS Safety Report 9423565 (Version 1)
Quarter: 2013Q3

REPORT INFORMATION
  Report Type: Spontaneous
  Country: US (occurrence: US)
  Receive Date: 20130726
  Receipt Date: 20130726
  Transmission Date: 20140515
  Serious: Yes (Other)
  Sender: FDA-Public Use
  Company Number: US-GLAXOSMITHKLINE-A1035127A

PATIENT
  Age: 80 Year
  Sex: Female

DRUGS (1)
  1. LAMICTAL [Suspect]
     Indication: DRUG DISPENSING ERROR
     Route: 065

REACTIONS (4)
  - Dementia [Unknown]
  - Pharyngeal oedema [Unknown]
  - Throat tightness [Unknown]
  - Drug dispensing error [Unknown]
